FAERS Safety Report 9886039 (Version 1)
Quarter: 2014Q1

REPORT INFORMATION
  Report Type: Spontaneous
  Country: US (occurrence: US)
  Receive Date: 20140210
  Receipt Date: 20140210
  Transmission Date: 20141002
  Serious: Yes (Hospitalization)
  Sender: FDA-Public Use
  Company Number: PHHY2014US013926

PATIENT
  Age: 65 Year
  Sex: Male

DRUGS (2)
  1. MOXIFLOXACIN [Suspect]
  2. VANCOMYCIN HYDROCHLORIDE [Suspect]
     Indication: WOUND INFECTION STAPHYLOCOCCAL

REACTIONS (9)
  - Glomerulonephritis acute [Unknown]
  - Haematuria [Unknown]
  - Proteinuria [Unknown]
  - Hypersensitivity vasculitis [Unknown]
  - Petechiae [Unknown]
  - Renal failure [Unknown]
  - Localised oedema [Unknown]
  - Rales [Unknown]
  - Drug level increased [Unknown]
